FAERS Safety Report 4931039-5 (Version None)
Quarter: 2006Q1

REPORT INFORMATION
  Report Type: 
  Country: None (occurrence: None)
  Receive Date: 20060227
  Receipt Date: 20060213
  Transmission Date: 20060701
  Serious: Yes (Hospitalization, Other)
  Sender: FDA-Public Use
  Company Number: GBR-2006-0002076

PATIENT
  Age: 88 Year
  Sex: Female

DRUGS (14)
  1. OXYNORM(OXYCODONE HYDROCHLORIDE) [Suspect]
     Dosage: 1 UNIT, DAILY, ORAL
     Route: 048
     Dates: end: 20051222
  2. NEURONTIN [Suspect]
     Dosage: 300 MG, DAILY, ORAL
     Route: 048
     Dates: end: 20051222
  3. COVERSYL (PERINDOPRIL) [Concomitant]
  4. IKOREL (NICORANDIL) [Concomitant]
  5. DESLORATADINE (DESLORATADINE) [Suspect]
     Dosage: 1 UNIT, DAILY, ORAL
     Route: 048
     Dates: start: 20051214, end: 20051222
  6. PAROXETINE HYDROCHLORIDE [Suspect]
     Dosage: 20 MG, DAILY, ORAL
     Route: 048
  7. TRINIPATCH (GLYCERYL TRINITRATE) [Concomitant]
  8. PREVISCAN (FLUINDIONE) [Concomitant]
  9. ISKEDYL (DIHYDROERGOCRISTINE MESILATE, RAUBASINE) [Concomitant]
  10. DOLIPRANE [Concomitant]
  11. FUROSEMIDE [Concomitant]
  12. LOVENOX [Concomitant]
  13. AUGMENTIN '125' [Concomitant]
  14. AMYCOR (BIFONAZOLE) [Concomitant]

REACTIONS (5)
  - CONFUSIONAL STATE [None]
  - FACIAL BONES FRACTURE [None]
  - FALL [None]
  - HALLUCINATION, VISUAL [None]
  - SOMNOLENCE [None]
